FAERS Safety Report 5149598-9 (Version None)
Quarter: 2006Q4

REPORT INFORMATION
  Report Type: 
  Country: None (occurrence: None)
  Receive Date: 20061113
  Receipt Date: 20060602
  Transmission Date: 20070319
  Serious: No
  Sender: FDA-Public Use
  Company Number: US-GLAXOSMITHKLINE-A0607745A

PATIENT
  Age: 54 Year
  Sex: Female

DRUGS (9)
  1. COREG [Suspect]
     Dosage: 3.125MG TWICE PER DAY
     Route: 048
  2. ALBUTEROL [Concomitant]
  3. COMBIVENT [Concomitant]
  4. IPRATROPIUM BROMIDE [Concomitant]
  5. XANAX [Concomitant]
  6. BENADRYL [Concomitant]
  7. SOMA [Concomitant]
  8. ASPIRIN [Concomitant]
  9. OXYGEN [Concomitant]

REACTIONS (2)
  - ASTHENIA [None]
  - GENERAL PHYSICAL HEALTH DETERIORATION [None]
